FAERS Safety Report 5444145-6 (Version None)
Quarter: 2007Q3

REPORT INFORMATION
  Report Type: 
  Country: None (occurrence: None)
  Receive Date: 20070904
  Receipt Date: 20070904
  Transmission Date: 20080115
  Serious: Yes (Other)
  Sender: FDA-Public Use
  Company Number: None

PATIENT
  Age: 53 Year
  Sex: Male
  Weight: 68 kg

DRUGS (11)
  1. CARIMUNE [Suspect]
     Indication: MYASTHENIA GRAVIS
     Dosage: 36 G DAILY IV
     Route: 042
     Dates: start: 20070808, end: 20070811
  2. AMLODIPINE [Concomitant]
  3. DULOXETINE [Concomitant]
  4. GLYCOPYRROLATE [Concomitant]
  5. LANTUS [Concomitant]
  6. PROTONIX [Concomitant]
  7. PYRIDOSTIGMINE BROMIDE [Concomitant]
  8. ALTACE [Concomitant]
  9. ZOFRAN [Concomitant]
  10. LABETALOL HCL [Concomitant]
  11. CELLCEPT [Concomitant]

REACTIONS (2)
  - NEUTROPENIA [None]
  - WHITE BLOOD CELL COUNT DECREASED [None]
